FAERS Safety Report 9418693 (Version 1)
Quarter: 2013Q3

REPORT INFORMATION
  Report Type: Spontaneous
  Country: US (occurrence: US)
  Receive Date: 20130725
  Receipt Date: 20130725
  Transmission Date: 20140515
  Serious: Yes (Hospitalization)
  Sender: FDA-Public Use
  Company Number: US-ACCORD-018656

PATIENT
  Age: 58 Year
  Sex: Male

DRUGS (2)
  1. TACROLIMUS [Suspect]
     Indication: RENAL TRANSPLANT
  2. VORICONAZOLE [Interacting]
     Indication: EVIDENCE BASED TREATMENT

REACTIONS (6)
  - Drug level increased [Recovering/Resolving]
  - Pneumonia pseudomonal [Unknown]
  - Nocardiosis [Unknown]
  - Pyrexia [Unknown]
  - Renal failure acute [Recovering/Resolving]
  - Drug interaction [Unknown]
